FAERS Safety Report 5048038-8 (Version None)
Quarter: 2006Q3

REPORT INFORMATION
  Report Type: 
  Country: None (occurrence: None)
  Receive Date: 20060711
  Receipt Date: 20060621
  Transmission Date: 20061208
  Serious: Yes (Hospitalization, Other)
  Sender: FDA-Public Use
  Company Number: JP-MERCK-0606USA05688

PATIENT
  Age: 35 Year
  Sex: Female

DRUGS (1)
  1. ALDOMET [Suspect]
     Route: 048

REACTIONS (4)
  - ADVERSE EVENT [None]
  - DRUG EXPOSURE DURING PREGNANCY [None]
  - HAEMOLYTIC ANAEMIA [None]
  - RENAL FAILURE [None]
